FAERS Safety Report 12855004 (Version 4)
Quarter: 2017Q2

REPORT INFORMATION
  Report Type: Report from Study
  Country: DE (occurrence: DE)
  Receive Date: 20161017
  Receipt Date: 20170629
  Transmission Date: 20170912
  Serious: Yes (Hospitalization)
  Sender: FDA-Public Use
  Company Number: DE-JNJFOC-20160930457

PATIENT
  Age: 84 Year
  Sex: Female
  Weight: 44 kg

DRUGS (21)
  1. PREDNISONE [Concomitant]
     Route: 048
     Dates: start: 2006
  2. ESOMEPRAZOLE [Concomitant]
     Active Substance: ESOMEPRAZOLE
     Indication: PROPHYLAXIS
     Route: 048
     Dates: start: 2010, end: 20160907
  3. RIVAROXABAN [Suspect]
     Active Substance: RIVAROXABAN
     Indication: AORTIC VALVE REPLACEMENT
     Route: 048
     Dates: start: 20160927
  4. CIPROFLOXACIN [Concomitant]
     Route: 042
     Dates: start: 20160906, end: 20160907
  5. RIVAROXABAN [Suspect]
     Active Substance: RIVAROXABAN
     Indication: THROMBOSIS PROPHYLAXIS
     Route: 048
     Dates: start: 20160927
  6. FOLIC ACID [Concomitant]
     Route: 048
     Dates: start: 2008
  7. PRAMIPEXOLE. [Concomitant]
     Active Substance: PRAMIPEXOLE
     Route: 048
  8. BISOPROLOL [Concomitant]
     Active Substance: BISOPROLOL
     Route: 048
     Dates: start: 20160905
  9. LEVODOPA [Concomitant]
     Active Substance: LEVODOPA
     Route: 048
     Dates: start: 2006
  10. ACETYLSALICYLIC ACID [Suspect]
     Active Substance: ASPIRIN
     Indication: ANTIPLATELET THERAPY
     Route: 048
     Dates: start: 20160909, end: 20161207
  11. GABAPENTIN [Concomitant]
     Route: 048
     Dates: start: 201608
  12. SPIRONOLACTON [Concomitant]
     Active Substance: SPIRONOLACTONE
     Route: 048
  13. RIVAROXABAN [Suspect]
     Active Substance: RIVAROXABAN
     Indication: AORTIC VALVE REPLACEMENT
     Route: 048
     Dates: start: 20160909, end: 20160917
  14. ACETYLSALICYLIC ACID [Suspect]
     Active Substance: ASPIRIN
     Indication: THROMBOSIS PROPHYLAXIS
     Route: 048
     Dates: start: 20160909, end: 20161207
  15. ASPIRIN. [Concomitant]
     Active Substance: ASPIRIN
     Route: 048
     Dates: start: 20160905, end: 20160908
  16. PRAMIPEXOLE. [Concomitant]
     Active Substance: PRAMIPEXOLE
     Route: 048
     Dates: start: 2004
  17. CLOPIDOGREL [Concomitant]
     Route: 048
     Dates: start: 20160905, end: 20160908
  18. PANTOPRAZOLE [Concomitant]
     Active Substance: PANTOPRAZOLE
     Indication: PROPHYLAXIS
     Route: 048
     Dates: start: 20160908
  19. RAMIPRIL [Concomitant]
     Route: 048
     Dates: start: 2006
  20. METHOTREXATE [Concomitant]
     Route: 048
     Dates: start: 2008
  21. CARBIDOPA. [Concomitant]
     Active Substance: CARBIDOPA
     Route: 048
     Dates: start: 2006

REACTIONS (1)
  - Haemoglobin decreased [Recovered/Resolved]

NARRATIVE: CASE EVENT DATE: 20160918
